FAERS Safety Report 5295197-8 (Version None)
Quarter: 2007Q2

REPORT INFORMATION
  Report Type: 
  Country: None (occurrence: None)
  Receive Date: 20070412
  Receipt Date: 20070328
  Transmission Date: 20071010
  Serious: Yes (Death, Hospitalization)
  Sender: FDA-Public Use
  Company Number: CH-GENENTECH-233995

PATIENT
  Sex: Male

DRUGS (11)
  1. BEVACIZUMAB [Suspect]
     Indication: NON-SMALL CELL LUNG CANCER
     Dosage: 1380 MG, QD
     Route: 042
     Dates: start: 20060602, end: 20061122
  2. ERLOTINIB [Suspect]
     Indication: NON-SMALL CELL LUNG CANCER
     Dosage: 150 MG, QD
     Route: 048
     Dates: start: 20061102, end: 20061207
  3. IPRATROPIUM BROMIDE [Concomitant]
     Indication: DRUG USE FOR UNKNOWN INDICATION
  4. ASPIRIN [Concomitant]
     Indication: DRUG USE FOR UNKNOWN INDICATION
  5. TRIATEC [Concomitant]
     Indication: DRUG USE FOR UNKNOWN INDICATION
  6. ADALAT [Concomitant]
     Indication: DRUG USE FOR UNKNOWN INDICATION
  7. DAFALGAN [Concomitant]
     Indication: DRUG USE FOR UNKNOWN INDICATION
     Dates: start: 20061209
  8. PANTOZOL [Concomitant]
     Indication: DRUG USE FOR UNKNOWN INDICATION
  9. HEPARIN [Concomitant]
     Indication: DRUG USE FOR UNKNOWN INDICATION
     Dates: start: 20061211
  10. PASPERTIN [Concomitant]
     Indication: DRUG USE FOR UNKNOWN INDICATION
     Dates: start: 20061210
  11. FLU VACCINE [Concomitant]
     Indication: DRUG USE FOR UNKNOWN INDICATION
     Dates: start: 20061116

REACTIONS (12)
  - ABDOMINAL DISTENSION [None]
  - AGITATION [None]
  - BOWEL SOUNDS ABNORMAL [None]
  - CONSTIPATION [None]
  - CYANOSIS [None]
  - DISEASE PROGRESSION [None]
  - DYSPEPSIA [None]
  - FALL [None]
  - LEFT VENTRICULAR FAILURE [None]
  - MUSCULOSKELETAL PAIN [None]
  - PLEURAL EFFUSION [None]
  - SUBILEUS [None]
